FAERS Safety Report 9421597 (Version 1)
Quarter: 2013Q3

REPORT INFORMATION
  Report Type: Spontaneous
  Country: US (occurrence: US)
  Receive Date: 20130726
  Receipt Date: 20130726
  Transmission Date: 20140515
  Serious: No
  Sender: FDA-Public Use
  Company Number: US-BIOGENIDEC-2013BI068709

PATIENT
  Age: 63 Year
  Sex: Female

DRUGS (4)
  1. AVONEX [Suspect]
     Indication: MULTIPLE SCLEROSIS
     Route: 030
     Dates: start: 20120314
  2. ALBUTEROL SULFATE [Concomitant]
  3. LASIX [Concomitant]
  4. DILTIAZEM HCL [Concomitant]

REACTIONS (3)
  - Cough [Unknown]
  - Chills [Unknown]
  - Vomiting [Unknown]
